FAERS Safety Report 20378709 (Version 1)
Quarter: 2022Q1

REPORT INFORMATION
  Report Type: Spontaneous
  Country: US (occurrence: None)
  Receive Date: 20220125
  Receipt Date: 20220125
  Transmission Date: 20220423
  Serious: Yes (Hospitalization)
  Sender: FDA-Public Use
  Company Number: None

PATIENT
  Age: 32 Year
  Sex: Male

DRUGS (2)
  1. QUETIAPINE [Suspect]
     Active Substance: QUETIAPINE
     Indication: Product used for unknown indication
  2. LITHIUM [Suspect]
     Active Substance: LITHIUM

REACTIONS (2)
  - Intentional self-injury [None]
  - Intentional overdose [None]

NARRATIVE: CASE EVENT DATE: 20210720
